FAERS Safety Report 5528010-1 (Version None)
Quarter: 2007Q4

REPORT INFORMATION
  Report Type: 
  Country: None (occurrence: None)
  Receive Date: 20071123
  Receipt Date: 20071116
  Transmission Date: 20080405
  Serious: Yes (Life-Threatening)
  Sender: FDA-Public Use
  Company Number: 2007-153554-NL

PATIENT
  Age: 60 Year
  Sex: Male

DRUGS (7)
  1. ROCURONIUM BROMIDE [Suspect]
     Indication: INDUCTION OF ANAESTHESIA
     Dosage: INTRAVENOUS NOS
     Route: 042
     Dates: start: 20070122, end: 20070122
  2. ROCURONIUM BROMIDE [Suspect]
     Indication: INTUBATION
     Dosage: INTRAVENOUS NOS
     Route: 042
     Dates: start: 20070122, end: 20070122
  3. GELOFUSINE [Suspect]
     Dosage: INTRAVENOUS NOS
     Route: 042
     Dates: start: 20070123, end: 20070123
  4. FENTANYL [Concomitant]
  5. PROPOFOL [Concomitant]
  6. LIDOCAINE [Concomitant]
  7. GLYCOPYRRONIUM BROMIDE [Concomitant]

REACTIONS (5)
  - ANAPHYLACTOID REACTION [None]
  - BLOOD PRESSURE DECREASED [None]
  - SWELLING FACE [None]
  - URTICARIA [None]
  - VENTRICULAR TACHYCARDIA [None]
